FAERS Safety Report 9406385 (Version 1)
Quarter: 2013Q3

REPORT INFORMATION
  Report Type: Spontaneous
  Country: US (occurrence: US)
  Receive Date: 20130718
  Receipt Date: 20130718
  Transmission Date: 20140515
  Serious: Yes (Other)
  Sender: FDA-Public Use
  Company Number: US-ROCHE-640974

PATIENT
  Age: 15 Year
  Sex: Female
  Weight: 53.3 kg

DRUGS (6)
  1. ACCUTANE [Suspect]
     Indication: ACNE
     Route: 065
     Dates: start: 20040224, end: 20040401
  2. AMNESTEEM [Suspect]
     Indication: ACNE
     Route: 065
     Dates: start: 20040324, end: 20040627
  3. SOTRET [Suspect]
     Indication: ACNE
     Route: 065
     Dates: start: 20040622, end: 20040722
  4. CELEXA [Concomitant]
     Indication: ANXIETY
     Route: 065
  5. MINOCYCLINE [Concomitant]
     Indication: ANTIBIOTIC THERAPY
     Route: 065
  6. ZITHROMAX [Concomitant]
     Indication: ANTIBIOTIC THERAPY
     Dosage: TRIPAK
     Route: 065

REACTIONS (15)
  - Anxiety [Unknown]
  - Rectal haemorrhage [Unknown]
  - Abdominal pain [Unknown]
  - Anaemia [Unknown]
  - Gastrointestinal disorder [Unknown]
  - Somnolence [Unknown]
  - Dyspepsia [Unknown]
  - Lip dry [Unknown]
  - Chapped lips [Unknown]
  - Nasal dryness [Unknown]
  - Dry skin [Unknown]
  - Headache [Unknown]
  - Dry eye [Unknown]
  - Colitis ulcerative [Unknown]
  - Inflammatory bowel disease [Unknown]
